FAERS Safety Report 6640291-X (Version None)
Quarter: 2010Q1

REPORT INFORMATION
  Report Type: 
  Country: None (occurrence: None)
  Receive Date: 20100302
  Receipt Date: 20091204
  Transmission Date: 20100710
  Serious: No
  Sender: FDA-Public Use
  Company Number: MC200900427

PATIENT
  Age: 25 Year
  Sex: Male

DRUGS (3)
  1. CLEVIPREX [Suspect]
     Indication: HYPERTENSION
  2. NITROGLYCERIN [Concomitant]
  3. ATIVAN [Concomitant]

REACTIONS (1)
  - DRUG INEFFECTIVE [None]
